FAERS Safety Report 6008429-5 (Version None)
Quarter: 2008Q4

REPORT INFORMATION
  Report Type: 
  Country: None (occurrence: None)
  Receive Date: 20081215
  Receipt Date: 20081204
  Transmission Date: 20090506
  Serious: Yes (Death)
  Sender: FDA-Public Use
  Company Number: 2008SP024864

PATIENT
  Age: 80 Year
  Sex: Male

DRUGS (7)
  1. DIAFUSOR (GLYCERYL TRINITRATE) (GLYCERYL TRINITRATE) [Suspect]
     Indication: DRUG USE FOR UNKNOWN INDICATION
     Dosage: 10 MG;QD;CUT
     Route: 003
     Dates: start: 19970329
  2. PYOSTACINE (PRISTINAMYCIN) [Suspect]
     Indication: DRUG USE FOR UNKNOWN INDICATION
     Dosage: 3 DF; QD
     Dates: start: 19970329
  3. FUROSEMIDE [Suspect]
     Indication: DRUG USE FOR UNKNOWN INDICATION
     Dosage: 40 MG;QD
  4. THEOPHYLLINE [Suspect]
     Indication: DRUG USE FOR UNKNOWN INDICATION
     Dosage: 200 MG; BID
     Dates: start: 19970329
  5. FONZYLANE (BUFLOMEDIL HYDROCHLORIDE) (300 MG) [Suspect]
     Indication: DRUG USE FOR UNKNOWN INDICATION
     Dosage: 300 MG; BID
     Dates: start: 19970329
  6. TRAMADOL HYDROCHLORIDE [Suspect]
     Indication: DRUG USE FOR UNKNOWN INDICATION
     Dosage: 50 MG; TID
     Dates: start: 19970504, end: 19970505
  7. BRICANYL [Suspect]
     Indication: DRUG USE FOR UNKNOWN INDICATION

REACTIONS (3)
  - CARDIAC ARREST [None]
  - CONFUSIONAL STATE [None]
  - INTESTINAL OBSTRUCTION [None]
